FAERS Safety Report 7794895-1 (Version None)
Quarter: 2011Q4

REPORT INFORMATION
  Report Type: 
  Country: None (occurrence: None)
  Receive Date: 20111004
  Receipt Date: 20110924
  Transmission Date: 20120403
  Serious: Yes (Hospitalization, Other)
  Sender: FDA-Public Use
  Company Number: PHHY2011US86213

PATIENT
  Age: 33 Year
  Sex: Male

DRUGS (6)
  1. CLOZAPINE [Suspect]
     Indication: SCHIZOAFFECTIVE DISORDER
     Dosage: 400 MG, PER DAY
  2. CLOZAPINE [Suspect]
     Dosage: 650 MG PER DAY
  3. ZIPRASIDONE HYDROCHLORIDE [Concomitant]
     Indication: PSYCHOTIC DISORDER
     Dosage: 160 MG, UNK
     Dates: start: 20071001
  4. VALPROIC ACID [Concomitant]
     Dosage: 750 MG, UNK
  5. ATORVASTATIN [Concomitant]
     Dosage: 20 MG, UNK
  6. ZIPRASIDONE HYDROCHLORIDE [Concomitant]
     Dosage: 240 MG, PER DAY

REACTIONS (7)
  - WHITE BLOOD CELL COUNT INCREASED [None]
  - BLOOD CREATINE PHOSPHOKINASE INCREASED [None]
  - PARANOIA [None]
  - INTERVERTEBRAL DISC PROTRUSION [None]
  - NEUTROPHIL COUNT INCREASED [None]
  - THINKING ABNORMAL [None]
  - BACK PAIN [None]
